FAERS Safety Report 9248160 (Version 2)
Quarter: 2013Q3

REPORT INFORMATION
  Report Type: Report from Study
  Country: RO (occurrence: RO)
  Receive Date: 20130423
  Receipt Date: 20130705
  Transmission Date: 20140515
  Serious: Yes (Hospitalization)
  Sender: FDA-Public Use
  Company Number: PHHO2013RO005562

PATIENT
  Age: 53 Year
  Sex: Male
  Weight: 92.3 kg

DRUGS (1)
  1. AMN107 [Suspect]
     Indication: CHRONIC MYELOID LEUKAEMIA
     Dosage: 150 MG, BID
     Route: 048
     Dates: start: 20110715, end: 20130418

REACTIONS (1)
  - Acute myocardial infarction [Not Recovered/Not Resolved]
